FAERS Safety Report 12137337 (Version 1)
Quarter: 2016Q1

REPORT INFORMATION
  Report Type: Report from Study
  Country: BR (occurrence: BR)
  Receive Date: 20160302
  Receipt Date: 20160302
  Transmission Date: 20160526
  Serious: Yes (Other)
  Sender: FDA-Public Use
  Company Number: BR-ABBVIE-16K-020-1568284-00

PATIENT
  Sex: Female
  Weight: 69 kg

DRUGS (9)
  1. HUMIRA [Suspect]
     Active Substance: ADALIMUMAB
     Indication: RHEUMATOID ARTHRITIS
     Route: 058
     Dates: start: 20141213
  2. MOTORE [Concomitant]
     Indication: PRODUCT USED FOR UNKNOWN INDICATION
     Route: 048
     Dates: start: 201512
  3. FOLIC ACID. [Concomitant]
     Active Substance: FOLIC ACID
     Indication: PROTEIN-LOSING GASTROENTEROPATHY
     Route: 048
  4. HUMIRA [Suspect]
     Active Substance: ADALIMUMAB
     Route: 058
  5. DAFORIN [Concomitant]
     Active Substance: FLUOXETINE HYDROCHLORIDE
     Indication: ANXIETY
     Route: 048
  6. DIACEREIN [Concomitant]
     Active Substance: DIACEREIN
     Indication: RHEUMATOID ARTHRITIS
     Route: 048
     Dates: start: 201512
  7. TECNOMET [Concomitant]
     Active Substance: METHOTREXATE
     Indication: RHEUMATOID ARTHRITIS
     Route: 048
  8. LISADOR [Concomitant]
     Active Substance: DIPYRONE\PROMETHAZINE HYDROCHLORIDE
     Indication: PAIN
     Dosage: 38 OR 40 DROPS IF PAIN
     Route: 048
  9. AMYTRIL [Concomitant]
     Active Substance: AMITRIPTYLINE HYDROCHLORIDE
     Indication: ANTIDEPRESSANT THERAPY
     Route: 048

REACTIONS (6)
  - Intervertebral disc protrusion [Not Recovered/Not Resolved]
  - Back pain [Unknown]
  - Drug ineffective [Not Recovered/Not Resolved]
  - Pain [Not Recovered/Not Resolved]
  - Furuncle [Not Recovered/Not Resolved]
  - Medical device discomfort [Not Recovered/Not Resolved]

NARRATIVE: CASE EVENT DATE: 2015
